FAERS Safety Report 24835843 (Version 1)
Quarter: 2025Q1

REPORT INFORMATION
  Report Type: Spontaneous
  Country: CN (occurrence: CN)
  Receive Date: 20250113
  Receipt Date: 20250113
  Transmission Date: 20250409
  Serious: Yes (Other)
  Sender: ROCHE
  Company Number: CN-ROCHE-10000176738

PATIENT

DRUGS (1)
  1. XOFLUZA [Suspect]
     Active Substance: BALOXAVIR MARBOXIL
     Indication: Hyperpyrexia
     Route: 065

REACTIONS (4)
  - Vomiting [Unknown]
  - Hyperpyrexia [Unknown]
  - Intentional product misuse [Unknown]
  - Pyrexia [Unknown]
